FAERS Safety Report 21190132 (Version 1)
Quarter: 2022Q3

REPORT INFORMATION
  Report Type: Spontaneous
  Country: ES (occurrence: ES)
  Receive Date: 20220809
  Receipt Date: 20220809
  Transmission Date: 20221027
  Serious: Yes (Disabling, Other)
  Sender: FDA-Public Use
  Company Number: ES-LABALTER-202202622

PATIENT
  Age: 71 Year
  Sex: Male

DRUGS (2)
  1. EZETIMIBE [Suspect]
     Active Substance: EZETIMIBE
     Indication: Hypercholesterolaemia
     Dosage: UNK
     Dates: start: 20220708
  2. ROSUVASTATIN CALCIUM [Suspect]
     Active Substance: ROSUVASTATIN CALCIUM
     Indication: Hypercholesterolaemia
     Dosage: 1/NIGHT EXPIRY DATE MAY 2024
     Route: 048
     Dates: start: 20220708, end: 20220718

REACTIONS (5)
  - Pain in extremity [Not Recovered/Not Resolved]
  - Back pain [Not Recovered/Not Resolved]
  - Pain [Not Recovered/Not Resolved]
  - Renal pain [Not Recovered/Not Resolved]
  - Movement disorder [Not Recovered/Not Resolved]

NARRATIVE: CASE EVENT DATE: 20220713
